FAERS Safety Report 7072162-1 (Version None)
Quarter: 2010Q4

REPORT INFORMATION
  Report Type: 
  Country: None (occurrence: None)
  Receive Date: 20101029
  Receipt Date: 20091211
  Transmission Date: 20110411
  Serious: No
  Sender: FDA-Public Use
  Company Number: A0834778A

PATIENT
  Age: 81 Year
  Sex: Female

DRUGS (11)
  1. ADVAIR DISKUS 100/50 [Suspect]
     Indication: EMPHYSEMA
     Dosage: 1PUFF TWICE PER DAY
     Route: 055
     Dates: start: 20091209
  2. ALBUTEROL [Concomitant]
  3. PROAIR HFA [Concomitant]
  4. METFORMIN [Concomitant]
  5. GLIPIZIDE [Concomitant]
  6. DIOVAN [Concomitant]
  7. ASPIRIN [Concomitant]
  8. CALCIUM [Concomitant]
  9. METOPROLOL [Concomitant]
  10. FELODIPINE [Concomitant]
  11. FOLIC ACID [Concomitant]

REACTIONS (2)
  - ASTHENIA [None]
  - FATIGUE [None]
